FAERS Safety Report 8969760 (Version 1)
Quarter: 2012Q4

REPORT INFORMATION
  Report Type: 
  Country: US (occurrence: US)
  Receive Date: 20121218
  Receipt Date: 20121218
  Transmission Date: 20130627
  Serious: No
  Sender: FDA-Public Use
  Company Number: US-BRISTOL-MYERS SQUIBB COMPANY-16241325

PATIENT
  Age: 89 Year
  Sex: Male

DRUGS (8)
  1. ABILIFY [Suspect]
  2. TYLENOL [Concomitant]
  3. SINEMET [Concomitant]
  4. PROSCAR [Concomitant]
  5. PLAVIX [Concomitant]
  6. POTASSIUM [Concomitant]
  7. ZANTAC [Concomitant]
  8. ZOCOR [Concomitant]

REACTIONS (1)
  - Agitation [Unknown]
